FAERS Safety Report 25087083 (Version 2)
Quarter: 2025Q2

REPORT INFORMATION
  Report Type: Spontaneous
  Country: CA (occurrence: CA)
  Receive Date: 20250318
  Receipt Date: 20250415
  Transmission Date: 20250716
  Serious: No
  Sender: CELLTRION
  Company Number: CA-CELLTRION INC.-2025CA007633

PATIENT

DRUGS (2)
  1. INFLIXIMAB [Suspect]
     Active Substance: INFLIXIMAB
     Indication: Crohn^s disease
     Dosage: 120 MG EVERY 2ND WEEK
     Route: 058
     Dates: start: 20250125
  2. INFLIXIMAB [Suspect]
     Active Substance: INFLIXIMAB
     Dosage: 120 MG WEEKLY
     Route: 058
     Dates: start: 20250125

REACTIONS (2)
  - Drug ineffective [Unknown]
  - Intentional product use issue [Unknown]
